FAERS Safety Report 7890122-5 (Version None)
Quarter: 2011Q4

REPORT INFORMATION
  Report Type: 
  Country: None (occurrence: None)
  Receive Date: 20111103
  Receipt Date: 20111019
  Transmission Date: 20120403
  Serious: Yes (Other)
  Sender: FDA-Public Use
  Company Number: US-WATSON-2011-17006

PATIENT
  Age: 45 Year
  Sex: Female

DRUGS (12)
  1. XYLOMETAZOLINE HYDROCHLORIDE [Concomitant]
     Indication: SEASONAL ALLERGY
     Dosage: DAILY
     Route: 065
  2. PREDNISONE ACETATE [Suspect]
     Indication: PRODUCT USED FOR UNKNOWN INDICATION
     Dosage: 40MG X 2 DAYS,  THEN 20MG DAILY FOR ANOTHER 2 DAYS
     Route: 042
     Dates: start: 20110927
  3. TRAMADOL HCL [Concomitant]
     Indication: PAIN
     Dosage: UNK
     Route: 065
  4. HUMIRA [Suspect]
     Indication: RHEUMATOID ARTHRITIS
     Dosage: 40 MG, 1 IN 2 WK
     Route: 065
     Dates: start: 20110420
  5. OTHER MINERAL SUPPLEMENTS [Concomitant]
     Indication: PRODUCT USED FOR UNKNOWN INDICATION
     Dosage: DAILY
     Route: 065
  6. GELNIQUE [Suspect]
     Indication: URINARY TRACT INFECTION
     Dosage: UNK
     Route: 061
     Dates: start: 20110914
  7. MULTIVITAMIN [Concomitant]
     Indication: PRODUCT USED FOR UNKNOWN INDICATION
     Dosage: DAILY
     Route: 065
  8. MACROBID [Suspect]
     Indication: URINARY TRACT INFECTION
     Dosage: UNK
     Route: 065
  9. CEFIXIME [Concomitant]
     Indication: PRODUCT USED FOR UNKNOWN INDICATION
     Dosage: 20 MG, DAILY
     Route: 065
  10. DEXILANT [Concomitant]
     Indication: GASTROOESOPHAGEAL REFLUX DISEASE
     Dosage: UNK
     Route: 065
  11. GELNIQUE [Suspect]
     Indication: POLLAKIURIA
  12. EXCEDRIN (MIGRAINE) [Concomitant]
     Indication: MIGRAINE
     Dosage: UNK
     Route: 065

REACTIONS (6)
  - IRRITABILITY [None]
  - CHEST DISCOMFORT [None]
  - PRURITUS [None]
  - DYSPNOEA [None]
  - DYSPNOEA EXERTIONAL [None]
  - URTICARIA [None]
